FAERS Safety Report 6170771-5 (Version None)
Quarter: 2009Q2

REPORT INFORMATION
  Report Type: 
  Country: None (occurrence: None)
  Receive Date: 20090428
  Receipt Date: 20090414
  Transmission Date: 20091009
  Serious: Yes (Hospitalization)
  Sender: FDA-Public Use
  Company Number: CN-GENENTECH-281206

PATIENT
  Sex: Male

DRUGS (5)
  1. BEVACIZUMAB [Suspect]
     Indication: HEPATOBILIARY NEOPLASM
     Dosage: 365 MG, Q2W
     Route: 042
     Dates: start: 20090216
  2. CISPLATIN [Suspect]
     Indication: HEPATOBILIARY NEOPLASM
     Dosage: 6 MG, Q8W
     Dates: start: 20090217
  3. ADEFOVIR DIPIVOXIL KIT [Concomitant]
     Indication: DRUG USE FOR UNKNOWN INDICATION
     Dosage: UNK
     Dates: start: 20071128
  4. PROPRANOLOL HYDROCHLORIDE [Concomitant]
     Indication: DRUG USE FOR UNKNOWN INDICATION
     Dosage: UNK
     Dates: start: 20070502
  5. ESOMEPRAZOLE [Concomitant]
     Indication: DRUG USE FOR UNKNOWN INDICATION
     Dosage: UNK
     Dates: start: 20090410

REACTIONS (1)
  - DUODENAL ULCER [None]
